FAERS Safety Report 6585442-0 (Version None)
Quarter: 2010Q1

REPORT INFORMATION
  Report Type: 
  Country: None (occurrence: None)
  Receive Date: 20100217
  Receipt Date: 20100204
  Transmission Date: 20100710
  Serious: Yes (Hospitalization)
  Sender: FDA-Public Use
  Company Number: B0633570A

PATIENT
  Sex: Male
  Weight: 70 kg

DRUGS (3)
  1. LAPATINIB [Suspect]
     Dosage: 1000MG PER DAY
     Route: 048
     Dates: start: 20091021
  2. GEMCITABINE [Suspect]
     Dosage: 1800MG CYCLIC
     Route: 042
     Dates: start: 20091021
  3. CISPLATIN [Suspect]
     Dosage: 130MG CYCLIC
     Route: 042
     Dates: start: 20091021

REACTIONS (3)
  - COUGH [None]
  - PNEUMONIA [None]
  - PYREXIA [None]
